FAERS Safety Report 15587715 (Version 2)
Quarter: 2018Q4

REPORT INFORMATION
  Report Type: Spontaneous
  Country: AU (occurrence: AU)
  Receive Date: 20181105
  Receipt Date: 20181203
  Transmission Date: 20190205
  Serious: Yes (Other)
  Sender: FDA-Public Use
  Company Number: PHHY2018AU146342

PATIENT
  Age: 44 Year
  Sex: Male

DRUGS (3)
  1. CYCLOSPORIN [Concomitant]
     Active Substance: CYCLOSPORINE
     Indication: PRODUCT USED FOR UNKNOWN INDICATION
     Dosage: 200 MG, BID
     Route: 048
     Dates: start: 201804
  2. ELTROMBOPAG [Concomitant]
     Active Substance: ELTROMBOPAG
     Indication: PRODUCT USED FOR UNKNOWN INDICATION
     Dosage: 100 MG, ONCE/SINGLE
     Route: 048
     Dates: start: 201806
  3. EXJADE [Suspect]
     Active Substance: DEFERASIROX
     Indication: APLASTIC ANAEMIA
     Dosage: 500 MG, TID (1.5 MG/KG, QD)
     Route: 048
     Dates: start: 20180904, end: 20181009

REACTIONS (2)
  - Renal disorder [Recovering/Resolving]
  - Creatinine renal clearance abnormal [Recovering/Resolving]

NARRATIVE: CASE EVENT DATE: 20180917
